FAERS Safety Report 13774927 (Version 1)
Quarter: 2017Q3

REPORT INFORMATION
  Report Type: Spontaneous
  Country: US (occurrence: US)
  Receive Date: 20170720
  Receipt Date: 20170720
  Transmission Date: 20171127
  Serious: No
  Sender: FDA-Public Use
  Company Number: None

PATIENT
  Sex: Female

DRUGS (1)
  1. COPAXONE [Suspect]
     Active Substance: GLATIRAMER ACETATE
     Indication: MULTIPLE SCLEROSIS
     Dosage: 40MG/ML TIW
     Route: 058
     Dates: start: 20170330, end: 20170617

REACTIONS (6)
  - Flushing [None]
  - Therapy cessation [None]
  - Chest pain [None]
  - Dyspnoea [None]
  - Rash macular [None]
  - Hyperhidrosis [None]
